FAERS Safety Report 8607297-2 (Version None)
Quarter: 2012Q3

REPORT INFORMATION
  Report Type: 
  Country: None (occurrence: None)
  Receive Date: 20120807
  Receipt Date: 20120726
  Transmission Date: 20120928
  Serious: Yes (Death, Hospitalization, Other)
  Sender: FDA-Public Use
  Company Number: 2009002030

PATIENT
  Age: 67 Year
  Sex: Male
  Weight: 46.9 kg

DRUGS (10)
  1. MUCODYNE (CARBOCISTEINE) [Concomitant]
  2. BASEN (VOGLIBOSE) [Concomitant]
  3. GASTER (GAMOTIDINE) [Concomitant]
  4. BUFFERIN [Concomitant]
  5. TARCEVA [Suspect]
     Indication: NON-SMALL CELL LUNG CANCER
     Dosage: 150 MG, UID/QD, ORAL
     Route: 048
     Dates: start: 20090105, end: 20090112
  6. ASPIRIN [Concomitant]
  7. PANVITAN (PANVITAN) [Concomitant]
  8. DILTIAZEM HYDROCHLORIDE [Concomitant]
  9. ISOSORBIDE MONONITRATE [Concomitant]
  10. GLIMICRON (GLICLAZIDE) [Concomitant]

REACTIONS (11)
  - WEIGHT DECREASED [None]
  - FATIGUE [None]
  - INTERSTITIAL LUNG DISEASE [None]
  - PYREXIA [None]
  - DYSGEUSIA [None]
  - DIARRHOEA [None]
  - DYSPNOEA [None]
  - DECREASED APPETITE [None]
  - STOMATITIS [None]
  - HYPOXIA [None]
  - DRY SKIN [None]
